FAERS Safety Report 7231027-2 (Version None)
Quarter: 2011Q1

REPORT INFORMATION
  Report Type: 
  Country: None (occurrence: None)
  Receive Date: 20110118
  Receipt Date: 20110106
  Transmission Date: 20110831
  Serious: Yes (Other)
  Sender: FDA-Public Use
  Company Number: DE-JNJFOC-20110104226

PATIENT
  Age: 60 Year
  Sex: Female
  Weight: 100 kg

DRUGS (7)
  1. CELIPROLOL [Concomitant]
  2. IBUPROFEN [Suspect]
     Indication: BACK PAIN
     Route: 048
  3. RAMIPRIL [Concomitant]
     Dosage: ^10^ 2 A DAY
  4. SIMVASTATIN [Concomitant]
  5. TRAMADOL [Concomitant]
     Dosage: 0.5 MG TWICE DAILY
  6. EUCREAS [Concomitant]
  7. LEVOTHYROXINE SODIUM [Concomitant]
     Dosage: 150, ONCE DAILY

REACTIONS (1)
  - VISUAL IMPAIRMENT [None]
